FAERS Safety Report 4965695-2 (Version None)
Quarter: 2006Q2

REPORT INFORMATION
  Report Type: 
  Country: None (occurrence: None)
  Receive Date: 20060407
  Receipt Date: 20060327
  Transmission Date: 20061013
  Serious: Yes (Death)
  Sender: FDA-Public Use
  Company Number: ES-SANOFI-SYNTHELABO-A01200602363

PATIENT
  Age: 78 Year
  Sex: Male
  Weight: 59 kg

DRUGS (8)
  1. PLAVIX [Suspect]
     Indication: CEREBROVASCULAR DISORDER
     Route: 048
     Dates: start: 20051223, end: 20060206
  2. SULFONA [Suspect]
     Indication: HIDRADENITIS
     Route: 048
     Dates: start: 20051227, end: 20060206
  3. OMEPRAZOLE [Suspect]
     Indication: DIAPHRAGMATIC HERNIA
     Route: 048
  4. ADIRO [Suspect]
     Indication: DRUG USE FOR UNKNOWN INDICATION
     Route: 048
     Dates: end: 20060206
  5. DIGOXIN [Suspect]
     Indication: ATRIAL FIBRILLATION
     Route: 048
  6. OPTOVITE B12 [Suspect]
     Indication: GASTRITIS ATROPHIC
     Route: 030
  7. SINTROM [Suspect]
     Indication: ATRIAL FIBRILLATION
     Dosage: UNK
     Route: 048
  8. VENTOLIN [Concomitant]
     Indication: ASTHMA
     Route: 055
     Dates: end: 20060217

REACTIONS (3)
  - ACUTE PULMONARY OEDEMA [None]
  - AGRANULOCYTOSIS [None]
  - PNEUMONIA [None]
